FAERS Safety Report 17796676 (Version 8)
Quarter: 2021Q1

REPORT INFORMATION
  Report Type: Report from Study
  Country: US (occurrence: US)
  Receive Date: 20200518
  Receipt Date: 20210111
  Transmission Date: 20210419
  Serious: Yes (Other)
  Sender: FDA-Public Use
  Company Number: US-B.I. PHARMACEUTICALS,INC./RIDGEFIELD-2020-BI-018789

PATIENT
  Age: 77 Year
  Sex: Male

DRUGS (3)
  1. OFEV [Suspect]
     Active Substance: NINTEDANIB
     Route: 048
  2. OFEV [Suspect]
     Active Substance: NINTEDANIB
     Indication: IDIOPATHIC PULMONARY FIBROSIS
     Dosage: TAKE 1 CAPSULE BY MOUTH TWICE A DAY 12 HOURS APART WITH FOOD, 150MG PO BID
     Route: 048
     Dates: start: 20200308
  3. OFEV [Suspect]
     Active Substance: NINTEDANIB
     Route: 048

REACTIONS (12)
  - Diarrhoea [Recovered/Resolved]
  - Flatulence [Recovered/Resolved]
  - Oxygen saturation decreased [Recovered/Resolved]
  - Gastrooesophageal reflux disease [Recovered/Resolved]
  - Weight decreased [Not Recovered/Not Resolved]
  - Cough [Recovering/Resolving]
  - Diarrhoea [Not Recovered/Not Resolved]
  - Diarrhoea [Recovered/Resolved]
  - Dyspnoea [Recovered/Resolved]
  - Diarrhoea [Recovered/Resolved]
  - Cough [Recovered/Resolved]
  - Flatulence [Not Recovered/Not Resolved]

NARRATIVE: CASE EVENT DATE: 2020
